FAERS Safety Report 9826814 (Version 1)
Quarter: 2013Q4

REPORT INFORMATION
  Report Type: Spontaneous
  Country: US (occurrence: None)
  Receive Date: 20131223
  Receipt Date: 20131223
  Transmission Date: 20140711
  Serious: Yes (Other)
  Sender: FDA-Public Use
  Company Number: 221266LEO

PATIENT
  Sex: Female

DRUGS (1)
  1. PICATO [Suspect]
     Route: 061
     Dates: start: 20130411

REACTIONS (3)
  - Eye irritation [None]
  - Application site pain [None]
  - Accidental exposure to product [None]
